FAERS Safety Report 4372222-X (Version None)
Quarter: 2004Q2

REPORT INFORMATION
  Report Type: 
  Country: None (occurrence: None)
  Receive Date: 20040607
  Receipt Date: 20040528
  Transmission Date: 20050107
  Serious: Yes (Life-Threatening)
  Sender: FDA-Public Use
  Company Number: FR-BRISTOL-MYERS SQUIBB COMPANY-12599239

PATIENT
  Age: 82 Year
  Sex: Female

DRUGS (6)
  1. ACETAMINOPHEN [Suspect]
     Route: 042
     Dates: start: 20040326
  2. AMIKLIN [Suspect]
     Indication: BACTERAEMIA
     Route: 042
     Dates: start: 20040329, end: 20040331
  3. MOPRAL [Suspect]
     Route: 042
     Dates: start: 20040326
  4. ROCEPHIN [Suspect]
     Indication: BACTERAEMIA
     Route: 042
     Dates: start: 20040329, end: 20040331
  5. PRIMPERAN INJ [Suspect]
     Route: 042
     Dates: start: 20040328, end: 20040328
  6. POLARAMINE [Suspect]
     Route: 048
     Dates: start: 20040328, end: 20040330

REACTIONS (1)
  - LEUKOPENIA [None]
